FAERS Safety Report 10694463 (Version 1)
Quarter: 2015Q1

REPORT INFORMATION
  Report Type: Spontaneous
  Country: CN (occurrence: CN)
  Receive Date: 20150107
  Receipt Date: 20150107
  Transmission Date: 20150721
  Serious: Yes (Death)
  Sender: FDA-Public Use
  Company Number: CN-ROCHE-1517633

PATIENT
  Age: 73 Year
  Sex: Male

DRUGS (2)
  1. CEFTRIAXONE SODIUM. [Suspect]
     Active Substance: CEFTRIAXONE SODIUM
     Indication: SILICOSIS
     Route: 042
  2. ASTRAGALUS GUMMIFER [Suspect]
     Active Substance: UNSPECIFIED INGREDIENT
     Indication: SILICOSIS
     Route: 065

REACTIONS (2)
  - Blood pressure decreased [None]
  - Autoimmune haemolytic anaemia [Fatal]
